FAERS Safety Report 6768236-2 (Version None)
Quarter: 2010Q2

REPORT INFORMATION
  Report Type: 
  Country: None (occurrence: None)
  Receive Date: 20100614
  Receipt Date: 20100608
  Transmission Date: 20101027
  Serious: Yes (Hospitalization)
  Sender: FDA-Public Use
  Company Number: JP-BAYER-200913210BYL

PATIENT
  Age: 46 Year
  Sex: Female
  Weight: 51 kg

DRUGS (6)
  1. NEXAVAR [Suspect]
     Indication: HEPATIC NEOPLASM MALIGNANT
     Dosage: TOTAL DAILY DOSE: 800 MG  UNIT DOSE: 200 MG
     Route: 048
     Dates: start: 20090701, end: 20090812
  2. NEXAVAR [Suspect]
     Dosage: UNIT DOSE: 200 MG
     Route: 048
     Dates: start: 20090812, end: 20090829
  3. OXYCONTIN [Concomitant]
     Indication: PAIN
     Dosage: SINCE BEFORE ADMINISTRATION
     Route: 048
  4. LOXONIN [Concomitant]
     Indication: PAIN
     Dosage: SINCE BEFORE ADMINISTRATION
     Route: 048
  5. PARIET [Concomitant]
     Indication: ULCER
     Dosage: SINCE BEFORE ADMINISTRATION
     Route: 048
  6. OXINORM [Concomitant]
     Indication: PAIN
     Dosage: 10-30MG/DAY
     Route: 048

REACTIONS (2)
  - HEPATIC FUNCTION ABNORMAL [None]
  - PALMAR-PLANTAR ERYTHRODYSAESTHESIA SYNDROME [None]
